FAERS Safety Report 7564617-8 (Version None)
Quarter: 2011Q2

REPORT INFORMATION
  Report Type: 
  Country: None (occurrence: None)
  Receive Date: 20110622
  Receipt Date: 20100920
  Transmission Date: 20111010
  Serious: Yes (Other)
  Sender: FDA-Public Use
  Company Number: US-MYLANLABS-2010S1012368

PATIENT
  Age: 55 Year
  Sex: Male
  Weight: 149.69 kg

DRUGS (8)
  1. LISINOPRIL [Concomitant]
  2. INSULIN [Concomitant]
  3. CLOZAPINE [Suspect]
     Indication: SCHIZOAFFECTIVE DISORDER
     Route: 048
     Dates: start: 20080101, end: 20100701
  4. VENLAFAXINE [Concomitant]
  5. RANITIDINE [Concomitant]
  6. GEODON [Concomitant]
  7. ZOCOR [Concomitant]
  8. MECLIZINE [Concomitant]

REACTIONS (2)
  - GRANULOCYTOPENIA [None]
  - LEUKOPENIA [None]
